FAERS Safety Report 5394571-9 (Version None)
Quarter: 2007Q3

REPORT INFORMATION
  Report Type: 
  Country: None (occurrence: None)
  Receive Date: 20070723
  Receipt Date: 20070711
  Transmission Date: 20080115
  Serious: Yes (Other)
  Sender: FDA-Public Use
  Company Number: US-SHR-US-2007-018851

PATIENT
  Age: 42 Year
  Sex: Female
  Weight: 72.562 kg

DRUGS (2)
  1. BETASERON [Suspect]
     Indication: RELAPSING-REMITTING MULTIPLE SCLEROSIS
     Dosage: 8 MIU, EVERY 2D
     Route: 058
     Dates: start: 20060821
  2. VESICARE [Concomitant]
     Route: 048
     Dates: start: 20050101

REACTIONS (1)
  - MALIGNANT MELANOMA [None]
